FAERS Safety Report 10152173 (Version 1)
Quarter: 2014Q2

REPORT INFORMATION
  Report Type: Spontaneous
  Country: US (occurrence: None)
  Receive Date: 20140502
  Receipt Date: 20140502
  Transmission Date: 20141212
  Serious: No
  Sender: FDA-Public Use
  Company Number: None

PATIENT
  Age: 39 Year
  Sex: Female
  Weight: 95.26 kg

DRUGS (2)
  1. DULOXETINE DR 20 MG CAPSULES STANDARD BLUE CAPSULE SIDE 1 2890 SIDE 2 2890 MFG ACTAVIS [Suspect]
     Indication: NEUROPATHY PERIPHERAL
     Dosage: 1 CAP
     Route: 048
     Dates: start: 20131202, end: 20140428
  2. DULOXETINE DR 20 MG CAPSULES STANDARD BLUE CAPSULE SIDE 1 2890 SIDE 2 2890 MFG ACTAVIS [Suspect]
     Indication: FIBROMYALGIA
     Dosage: 1 CAP
     Route: 048
     Dates: start: 20131202, end: 20140428

REACTIONS (7)
  - Migraine [None]
  - Urine abnormality [None]
  - Mouth ulceration [None]
  - Fatigue [None]
  - Weight increased [None]
  - Aphagia [None]
  - Product substitution issue [None]
